FAERS Safety Report 21362091 (Version 6)
Quarter: 2022Q4

REPORT INFORMATION
  Report Type: Report from Study
  Country: CN (occurrence: CN)
  Receive Date: 20220922
  Receipt Date: 20221219
  Transmission Date: 20230112
  Serious: Yes (Hospitalization, Other)
  Sender: FDA-Public Use
  Company Number: CN-BIOGEN-2022BI01153425

PATIENT
  Age: 245 Day
  Sex: Male
  Weight: 5.5 kg

DRUGS (2)
  1. SPINRAZA [Suspect]
     Active Substance: NUSINERSEN
     Indication: Spinal muscular atrophy
     Route: 050
     Dates: start: 20220708
  2. SPINRAZA [Suspect]
     Active Substance: NUSINERSEN
     Route: 050
     Dates: start: 20220805

REACTIONS (8)
  - Pneumonia [Recovered/Resolved]
  - Sepsis [Recovered/Resolved]
  - Respiratory failure [Recovered/Resolved]
  - Urinary tract infection [Not Recovered/Not Resolved]
  - Myocardial injury [Not Recovered/Not Resolved]
  - Respiratory tract ulceration [Not Recovered/Not Resolved]
  - Pyelocaliectasis [Not Recovered/Not Resolved]
  - Excessive granulation tissue [Not Recovered/Not Resolved]

NARRATIVE: CASE EVENT DATE: 20220903
